FAERS Safety Report 4304484-9 (Version None)
Quarter: 2004Q1

REPORT INFORMATION
  Report Type: 
  Country: None (occurrence: None)
  Receive Date: 20040224
  Receipt Date: 20040209
  Transmission Date: 20041129
  Serious: Yes (Life-Threatening)
  Sender: FDA-Public Use
  Company Number: RENA-10385

PATIENT
  Age: 68 Year
  Sex: Female
  Weight: 41 kg

DRUGS (9)
  1. RENAGEL [Suspect]
     Indication: HYPERPHOSPHATAEMIA
     Dosage: 1 G TID PO
     Route: 048
     Dates: start: 20030710, end: 20030721
  2. RENAGEL [Suspect]
     Indication: HYPERPHOSPHATAEMIA
     Dosage: 1.5 G BID PO
     Route: 048
     Dates: start: 20030724, end: 20030727
  3. NORVASC [Concomitant]
  4. LASIX [Concomitant]
  5. THIODERON [Concomitant]
  6. SELBEX [Concomitant]
  7. EPOGIN [Concomitant]
  8. OXAROL [Concomitant]
  9. ADALAT [Concomitant]

REACTIONS (6)
  - BLOOD PRESSURE INCREASED [None]
  - C-REACTIVE PROTEIN INCREASED [None]
  - CHEST PAIN [None]
  - DIALYSIS [None]
  - HEADACHE [None]
  - WHITE BLOOD CELL COUNT INCREASED [None]
